FAERS Safety Report 4764393-8 (Version None)
Quarter: 2005Q3

REPORT INFORMATION
  Report Type: 
  Country: None (occurrence: None)
  Receive Date: 20050906
  Receipt Date: 20050822
  Transmission Date: 20060218
  Serious: Yes (Hospitalization)
  Sender: FDA-Public Use
  Company Number: US014352

PATIENT
  Age: 26 Year
  Sex: Female
  Weight: 67.586 kg

DRUGS (3)
  1. PROVIGIL [Suspect]
     Indication: FATIGUE
     Dosage: 200 MG PRN ORAL
     Route: 048
     Dates: start: 20040801, end: 20041115
  2. PROVIGIL [Suspect]
     Indication: MULTIPLE SCLEROSIS
     Dosage: 200 MG PRN ORAL
     Route: 048
     Dates: start: 20040801, end: 20041115
  3. AVONEX [Suspect]
     Indication: MULTIPLE SCLEROSIS

REACTIONS (15)
  - ANTINUCLEAR ANTIBODY POSITIVE [None]
  - ARTHRALGIA [None]
  - AUTONOMIC NERVOUS SYSTEM IMBALANCE [None]
  - DRUG INTERACTION [None]
  - FLUSHING [None]
  - HEADACHE [None]
  - LOSS OF CONSCIOUSNESS [None]
  - PYREXIA [None]
  - RASH [None]
  - SINUS TACHYCARDIA [None]
  - SWELLING [None]
  - TOXIC SHOCK SYNDROME [None]
  - URTICARIA [None]
  - VISION BLURRED [None]
  - VISUAL DISTURBANCE [None]
